FAERS Safety Report 18517014 (Version 1)
Quarter: 2020Q4

REPORT INFORMATION
  Report Type: Report from Study
  Country: BR (occurrence: BR)
  Receive Date: 20201118
  Receipt Date: 20201118
  Transmission Date: 20210114
  Serious: Yes (Other)
  Sender: FDA-Public Use
  Company Number: BR-JNJFOC-20201124083

PATIENT
  Age: 15 Year
  Sex: Female
  Weight: 32 kg

DRUGS (1)
  1. REMICADE [Suspect]
     Active Substance: INFLIXIMAB
     Indication: COLITIS
     Route: 042
     Dates: start: 20191031

REACTIONS (2)
  - Product dose omission issue [Unknown]
  - Colostomy [Unknown]

NARRATIVE: CASE EVENT DATE: 202008
